FAERS Safety Report 6628866-5 (Version None)
Quarter: 2010Q1

REPORT INFORMATION
  Report Type: 
  Country: None (occurrence: None)
  Receive Date: 20100311
  Receipt Date: 20100225
  Transmission Date: 20100710
  Serious: Yes (Hospitalization)
  Sender: FDA-Public Use
  Company Number: DE-ELI_LILLY_AND_COMPANY-DE201002006863

PATIENT
  Sex: Female

DRUGS (8)
  1. FORTEO [Suspect]
     Indication: OSTEOPOROSIS
     Dosage: UNK, UNKNOWN
     Route: 058
     Dates: start: 20091127
  2. ASPIRIN [Concomitant]
     Dosage: UNK, UNKNOWN
     Route: 065
  3. PIRACETAM [Concomitant]
     Dosage: UNK, UNKNOWN
     Route: 065
  4. CALCILAC /00944201/ [Concomitant]
     Dosage: UNK, UNKNOWN
     Route: 065
  5. CABERGOLINE [Concomitant]
     Dosage: UNK, UNKNOWN
     Route: 065
  6. TORSEMIDE [Concomitant]
     Dosage: UNK, UNKNOWN
     Route: 065
  7. LIMPTAR [Concomitant]
     Dosage: UNK, UNKNOWN
     Route: 065
  8. LISINOPRIL [Concomitant]
     Dosage: UNK, UNKNOWN
     Route: 065

REACTIONS (6)
  - ANGINA PECTORIS [None]
  - BACK PAIN [None]
  - DIZZINESS [None]
  - DYSPNOEA [None]
  - MUSCULAR WEAKNESS [None]
  - NAUSEA [None]
